FAERS Safety Report 19475334 (Version 2)
Quarter: 2024Q4

REPORT INFORMATION
  Report Type: Report from Study
  Country: BG (occurrence: BG)
  Receive Date: 20210630
  Receipt Date: 20241008
  Transmission Date: 20250114
  Serious: Yes (Death)
  Sender: ROCHE
  Company Number: BG-CELLTRION HEALTHCARE HUNGARY KFT-2019BG028773

PATIENT
  Age: 51 Year
  Sex: Female
  Weight: 75 kg

DRUGS (3)
  1. TRASTUZUMAB [Suspect]
     Active Substance: TRASTUZUMAB
     Indication: Breast cancer
     Dosage: 450 MILLIGRAM, 2 WEEK (450 MILLIGRAM, Q3W - EVERY 3 WEEKS)
     Route: 041
     Dates: start: 20181121
  2. PERTUZUMAB [Suspect]
     Active Substance: PERTUZUMAB
     Indication: Breast cancer
     Dosage: 420 MILLIGRAM, 2 WEEK (420 MILLIGRAM, Q3W - EVERY 3 WEEKS)
     Route: 042
     Dates: start: 20181121
  3. TAXOTERE [Suspect]
     Active Substance: DOCETAXEL
     Indication: Breast cancer
     Dosage: 160 MILLIGRAM, 2 WEEK (160 MILLIGRAM, Q3W - EVERY 3 WEEKS)
     Route: 042
     Dates: start: 20181121

REACTIONS (1)
  - Pulmonary embolism [Fatal]

NARRATIVE: CASE EVENT DATE: 20190110
